FAERS Safety Report 7919585-3 (Version None)
Quarter: 2011Q4

REPORT INFORMATION
  Report Type: 
  Country: None (occurrence: None)
  Receive Date: 20111117
  Receipt Date: 20110502
  Transmission Date: 20120403
  Serious: No
  Sender: FDA-Public Use
  Company Number: US-BAYER-2011-038102

PATIENT
  Age: 53 Year
  Sex: Female

DRUGS (1)
  1. CLIMARA PRO [Suspect]
     Indication: HOT FLUSH
     Dosage: UNK
     Route: 062
     Dates: start: 20060101

REACTIONS (9)
  - METRORRHAGIA [None]
  - MALAISE [None]
  - UTERINE SPASM [None]
  - HYPERTENSION [None]
  - ALOPECIA [None]
  - FEELING ABNORMAL [None]
  - NERVOUSNESS [None]
  - INSOMNIA [None]
  - PRODUCT ADHESION ISSUE [None]
